FAERS Safety Report 18392296 (Version 1)
Quarter: 2020Q4

REPORT INFORMATION
  Report Type: Spontaneous
  Country: US (occurrence: US)
  Receive Date: 20201016
  Receipt Date: 20201016
  Transmission Date: 20210114
  Serious: Yes (Hospitalization, Other)
  Sender: FDA-Public Use
  Company Number: US-BRISTOL-MYERS SQUIBB COMPANY-BMS-2020-082528

PATIENT
  Sex: Male

DRUGS (2)
  1. TEMPORAL [Concomitant]
     Indication: PRODUCT USED FOR UNKNOWN INDICATION
     Dosage: 50 MILLIGRAM
     Route: 065
  2. COUMADIN [Suspect]
     Active Substance: WARFARIN SODIUM
     Indication: ATRIAL FIBRILLATION
     Dosage: 5 MILLIGRAM, 4 DAYS A WEEK AND 3 DAYS A WEEK ( 2.5 MG)( M,W,F)
     Route: 048
     Dates: start: 2005

REACTIONS (2)
  - Peritoneal hernia [Unknown]
  - Aortic disorder [Unknown]

NARRATIVE: CASE EVENT DATE: 2011
